FAERS Safety Report 24090906 (Version 1)
Quarter: 2024Q3

REPORT INFORMATION
  Report Type: Report from Study
  Country: US (occurrence: US)
  Receive Date: 20240715
  Receipt Date: 20240715
  Transmission Date: 20241016
  Serious: Yes (Hospitalization)
  Sender: MYLAN
  Company Number: US-MYLANLABS-2024M1065414

PATIENT

DRUGS (1)
  1. GLATIRAMER ACETATE [Suspect]
     Active Substance: GLATIRAMER ACETATE
     Indication: Relapsing-remitting multiple sclerosis
     Dosage: 40 MILLIGRAM
     Route: 065

REACTIONS (4)
  - Skin laceration [Unknown]
  - Bladder dysfunction [Unknown]
  - Muscular weakness [Unknown]
  - Gait disturbance [Unknown]
